FAERS Safety Report 20892805 (Version 3)
Quarter: 2024Q3

REPORT INFORMATION
  Report Type: Report from Study
  Country: FR (occurrence: FR)
  Receive Date: 20220531
  Receipt Date: 20240815
  Transmission Date: 20241016
  Serious: Yes (Hospitalization)
  Sender: ABBVIE
  Company Number: FR-ABBVIE-22K-056-4414692-00

PATIENT
  Age: 64 Year
  Sex: Female
  Weight: 75 kg

DRUGS (23)
  1. RISANKIZUMAB [Suspect]
     Active Substance: RISANKIZUMAB
     Indication: Psoriasis
     Route: 058
     Dates: start: 20201119, end: 20201216
  2. RISANKIZUMAB [Suspect]
     Active Substance: RISANKIZUMAB
     Route: 058
     Dates: start: 20210430, end: 20210528
  3. RISANKIZUMAB [Suspect]
     Active Substance: RISANKIZUMAB
     Route: 058
     Dates: start: 20201217, end: 20210110
  4. RISANKIZUMAB [Suspect]
     Active Substance: RISANKIZUMAB
     Route: 058
     Dates: start: 20210528
  5. GLICLAZIDE [Concomitant]
     Active Substance: GLICLAZIDE
     Indication: Type 2 diabetes mellitus
     Dosage: 120 MILLIGRAM
     Route: 048
  6. INSULIN GLARGINE [Concomitant]
     Active Substance: INSULIN GLARGINE
     Indication: Type 2 diabetes mellitus
     Route: 058
     Dates: end: 20220505
  7. OZEMPIC [Concomitant]
     Active Substance: SEMAGLUTIDE
     Indication: Type 2 diabetes mellitus
     Dosage: ONCE A WEEK EVERY MONDAY
     Route: 058
  8. CHOLECALCIFEROL [Concomitant]
     Active Substance: CHOLECALCIFEROL
     Indication: Vitamin D deficiency
     Dosage: FREQUENCY: EVERY WEEK FOR 1 MONTH, THEN EVERY MONTH, 50000
     Route: 048
     Dates: start: 20220505
  9. IRBESARTAN AND HYDROCHLOROTHIAZIDE [Concomitant]
     Active Substance: HYDROCHLOROTHIAZIDE\IRBESARTAN
     Indication: Hypertension
     Dosage: 150,12.5 MG
     Route: 048
     Dates: end: 2022
  10. IRBESARTAN AND HYDROCHLOROTHIAZIDE [Concomitant]
     Active Substance: HYDROCHLOROTHIAZIDE\IRBESARTAN
     Indication: Hypertension
     Dosage: 300 MG, FIRST ADMIN DATE: 2022
     Route: 048
  11. CYMBALTA [Concomitant]
     Active Substance: DULOXETINE HYDROCHLORIDE
     Indication: Diabetic neuropathy
     Route: 048
  12. LEVOTHYROXINE [Concomitant]
     Active Substance: LEVOTHYROXINE\LEVOTHYROXINE SODIUM
     Indication: Hypothyroidism
     Dosage: 62.5 MICROGRAM
     Route: 048
  13. ATORVASTATIN [Concomitant]
     Active Substance: ATORVASTATIN
     Indication: Cardiovascular event prophylaxis
     Dosage: 20 MILLIGRAM
     Route: 048
     Dates: start: 20210113
  14. BISOPROLOL [Concomitant]
     Active Substance: BISOPROLOL\BISOPROLOL FUMARATE
     Indication: Cardiac failure
     Dosage: FORM STRENGTH: 1.25MG
     Route: 048
     Dates: start: 20210112
  15. DULOXETINE [Concomitant]
     Active Substance: DULOXETINE
     Indication: Diabetic neuropathy
     Dosage: 12.5 MILLIGRAM
     Route: 048
     Dates: start: 20210111
  16. FUROSEMIDE [Concomitant]
     Active Substance: FUROSEMIDE
     Indication: Hypertension
     Dosage: 20 MILLIGRAM
     Route: 048
     Dates: start: 202101
  17. POTASSIUM CHLORIDE [Concomitant]
     Active Substance: POTASSIUM CHLORIDE
     Indication: Hypokalaemia
     Dosage: 1.2 GRAM
     Route: 048
     Dates: start: 202101
  18. ENSTILAR [Concomitant]
     Active Substance: BETAMETHASONE DIPROPIONATE\CALCIPOTRIENE HYDRATE
     Indication: Eczema
     Dosage: 1 TIMES A DAY DURING ONE MONTH THEN 2 TIMES A WEEK
     Route: 061
     Dates: start: 20211022
  19. FONDAPARINUX [Concomitant]
     Active Substance: FONDAPARINUX
     Indication: Deep vein thrombosis
     Dosage: 2.5 MILLIGRAM
     Route: 058
     Dates: start: 20210111
  20. ASPIRIN [Concomitant]
     Active Substance: ASPIRIN
     Indication: Cardiovascular event prophylaxis
     Route: 048
     Dates: start: 20210112
  21. ACETAMINOPHEN\OPIUM [Concomitant]
     Active Substance: ACETAMINOPHEN\OPIUM
     Indication: Analgesic therapy
     Dosage: 500/25MG, 1 TO 4 TIMES PER DAY
     Route: 048
  22. INSULIN GLULISINE [Concomitant]
     Active Substance: INSULIN GLULISINE
     Indication: Hyperglycaemia
     Route: 058
     Dates: start: 20220331
  23. PANTOPRAZOLE [Concomitant]
     Active Substance: PANTOPRAZOLE
     Indication: Gastrooesophageal reflux disease
     Dosage: 40 MILLIGRAM
     Route: 048
     Dates: start: 20220331

REACTIONS (4)
  - Condition aggravated [Recovering/Resolving]
  - Hyperglycaemia [Recovering/Resolving]
  - Diabetes mellitus inadequate control [Recovering/Resolving]
  - Gastrointestinal disorder [Recovering/Resolving]

NARRATIVE: CASE EVENT DATE: 20220311
